FAERS Safety Report 6267233-3 (Version None)
Quarter: 2009Q3

REPORT INFORMATION
  Report Type: 
  Country: None (occurrence: None)
  Receive Date: 20090714
  Receipt Date: 20090702
  Transmission Date: 20100115
  Serious: Yes (Other)
  Sender: FDA-Public Use
  Company Number: GB-PFIZER INC-2009235247

PATIENT

DRUGS (1)
  1. AROMASIN [Suspect]

REACTIONS (1)
  - GASTROINTESTINAL TUBE INSERTION [None]
